FAERS Safety Report 9172341 (Version 1)
Quarter: 2013Q1

REPORT INFORMATION
  Report Type: Report from Study
  Country: US (occurrence: US)
  Receive Date: 20130319
  Receipt Date: 20130319
  Transmission Date: 20140127
  Serious: Yes (Life-Threatening, Hospitalization)
  Sender: FDA-Public Use
  Company Number: US-TEVA-392457USA

PATIENT
  Age: 2 Year
  Sex: Male
  Weight: 12.5 kg

DRUGS (5)
  1. LESTAURTINIB [Suspect]
     Indication: ACUTE LYMPHOCYTIC LEUKAEMIA
     Dates: start: 20110527, end: 20130302
  2. DEXAMETHASONE [Suspect]
     Dates: start: 20110527, end: 20130307
  3. MERCAPTOPURINE [Suspect]
     Dates: start: 20110527, end: 20130307
  4. METHOTREXATE [Suspect]
     Dates: start: 20110527, end: 20130304
  5. VINCRISTINE [Suspect]
     Dates: start: 20110527, end: 20130225

REACTIONS (5)
  - Respiratory failure [Unknown]
  - Lymphocyte count decreased [Unknown]
  - Pneumocystis jirovecii infection [Unknown]
  - Hypotension [Recovered/Resolved]
  - Pyrexia [Recovered/Resolved]
